FAERS Safety Report 7867379-X (Version None)
Quarter: 2011Q4

REPORT INFORMATION
  Report Type: 
  Country: None (occurrence: None)
  Receive Date: 20111021
  Receipt Date: 20111011
  Transmission Date: 20120403
  Serious: Yes (Disabling, Other)
  Sender: FDA-Public Use
  Company Number: 2011SP048103

PATIENT
  Age: 80 Year
  Sex: Male

DRUGS (3)
  1. DEXAMETHASONE [Suspect]
     Indication: DECREASED APPETITE
     Dosage: 2 DF;QD;PO
     Route: 048
     Dates: start: 20111001
  2. DECAPEPTYL SR MOVICOL /01053601/ [Concomitant]
  3. MS CONTIN [Concomitant]

REACTIONS (2)
  - DYSPNOEA [None]
  - FEAR [None]
